FAERS Safety Report 4555494-8 (Version None)
Quarter: 2005Q1

REPORT INFORMATION
  Report Type: 
  Country: None (occurrence: None)
  Receive Date: 20050119
  Receipt Date: 20050105
  Transmission Date: 20050727
  Serious: Yes (Other)
  Sender: FDA-Public Use
  Company Number: NL-SOLVAY-00205000044

PATIENT
  Age: 36 Year
  Sex: Female

DRUGS (2)
  1. MESALAMINE [Suspect]
     Indication: COLITIS ULCERATIVE
     Dosage: DAILY DOSE: 2000 MILLIGRAM(S)
     Route: 048
  2. MESALAMINE [Suspect]
     Indication: COLITIS ULCERATIVE
     Dosage: DAILY DOSE: 1500 MILLIGRAM(S)
     Route: 054

REACTIONS (6)
  - CHEST PAIN [None]
  - COUGH [None]
  - DRUG TOXICITY [None]
  - NIGHT SWEATS [None]
  - PNEUMONITIS [None]
  - PYREXIA [None]
